FAERS Safety Report 20782783 (Version 3)
Quarter: 2022Q2

REPORT INFORMATION
  Report Type: Spontaneous
  Country: US (occurrence: US)
  Receive Date: 20220504
  Receipt Date: 20220530
  Transmission Date: 20220720
  Serious: Yes (Death)
  Sender: FDA-Public Use
  Company Number: US-ABBVIE-22K-163-4377548-00

PATIENT
  Age: 21 Year
  Sex: Male

DRUGS (1)
  1. HUMIRA [Suspect]
     Active Substance: ADALIMUMAB
     Indication: Crohn^s disease
     Route: 058
     Dates: start: 202010, end: 202106

REACTIONS (9)
  - Progressive multifocal leukoencephalopathy [Fatal]
  - Headache [Fatal]
  - Head discomfort [Fatal]
  - Muscle spasms [Fatal]
  - Confusional state [Fatal]
  - Cerebral disorder [Fatal]
  - Seizure [Fatal]
  - Immunosuppression [Unknown]
  - Infection [Unknown]

NARRATIVE: CASE EVENT DATE: 20210201
